FAERS Safety Report 9246013 (Version 1)
Quarter: 2013Q2

REPORT INFORMATION
  Report Type: Spontaneous
  Country: BR (occurrence: BR)
  Receive Date: 20130422
  Receipt Date: 20130422
  Transmission Date: 20140414
  Serious: Yes (Hospitalization)
  Sender: FDA-Public Use
  Company Number: BR-ELI_LILLY_AND_COMPANY-BR201304003513

PATIENT
  Age: 4 Year
  Sex: Male
  Weight: 17.3 kg

DRUGS (5)
  1. HUMULIN NPH [Suspect]
     Indication: TYPE 1 DIABETES MELLITUS
     Dosage: 3 IU, EACH MORNING
     Route: 058
     Dates: start: 201301
  2. HUMULIN NPH [Suspect]
     Dosage: 2 IU, QD
     Route: 058
     Dates: start: 201301
  3. HUMULIN NPH [Suspect]
     Dosage: 1 IU, EACH EVENING
     Route: 058
     Dates: start: 201301
  4. HUMALOG LISPRO [Suspect]
     Indication: TYPE 1 DIABETES MELLITUS
     Dosage: UNK, PRN
     Route: 058
     Dates: start: 201301
  5. LANTUS [Concomitant]
     Dosage: 7 IU, QD
     Route: 065

REACTIONS (1)
  - Viral infection [Recovering/Resolving]
